FAERS Safety Report 15413026 (Version 1)
Quarter: 2018Q3

REPORT INFORMATION
  Report Type: Spontaneous
  Country: US (occurrence: US)
  Receive Date: 20180917
  Receipt Date: 20180917
  Transmission Date: 20181010
  Serious: No
  Sender: FDA-Public Use
  Company Number: None

PATIENT
  Age: 72 Year
  Sex: Male

DRUGS (5)
  1. PULMOZYME [Suspect]
     Active Substance: DORNASE ALFA
     Indication: CYSTIC FIBROSIS
     Route: 055
     Dates: start: 20140723, end: 20180914
  2. SODIUM CHLORIDE. [Concomitant]
     Active Substance: SODIUM CHLORIDE
  3. HYDROMORPHONE [Concomitant]
     Active Substance: HYDROMORPHONE
  4. ALBUTEROL. [Concomitant]
     Active Substance: ALBUTEROL
  5. TOBRAMYCIN  300MG/5ML [Suspect]
     Active Substance: TOBRAMYCIN
     Indication: CYSTIC FIBROSIS
     Dosage: 300MG/5ML BID INHALATION
     Route: 055
     Dates: start: 20140722, end: 20180914

REACTIONS (1)
  - Death [None]
